FAERS Safety Report 9071170 (Version 2)
Quarter: 2013Q1

REPORT INFORMATION
  Report Type: Spontaneous
  Country: US (occurrence: US)
  Receive Date: 20130206
  Receipt Date: 20130326
  Transmission Date: 20140127
  Serious: Yes (Hospitalization)
  Sender: FDA-Public Use
  Company Number: US-B.I. PHARMACEUTICALS,INC./RIDGEFIELD-2013-BI-02522BP

PATIENT
  Age: 60 None
  Sex: Female
  Weight: 115 kg

DRUGS (8)
  1. PRADAXA [Suspect]
     Indication: ATRIAL FIBRILLATION
     Dosage: 300 MG
     Dates: start: 2010
  2. HCTZ [Concomitant]
     Indication: HYPERTENSION
     Dosage: 12.5 MG
  3. TENORMIN [Concomitant]
     Indication: ATRIAL FIBRILLATION
     Dosage: 100 MG
  4. TENORMIN [Concomitant]
     Indication: HYPERTENSION
  5. LEXAPRO [Concomitant]
     Indication: DEPRESSION
     Dosage: 10 MG
  6. NEURONTIN [Concomitant]
     Indication: MIGRAINE
     Dosage: 1800 MG
  7. LOSARTAN [Concomitant]
     Indication: HYPERTENSION
     Dosage: 50 MG
  8. LIPITOR [Concomitant]
     Indication: BLOOD CHOLESTEROL INCREASED
     Dosage: 10 MG

REACTIONS (1)
  - Cerebrovascular accident [Recovered/Resolved]
